FAERS Safety Report 6417027-0 (Version None)
Quarter: 2009Q4

REPORT INFORMATION
  Report Type: 
  Country: None (occurrence: None)
  Receive Date: 20091026
  Receipt Date: 20091011
  Transmission Date: 20100525
  Serious: Yes (Other)
  Sender: FDA-Public Use
  Company Number: 2009-4304

PATIENT

DRUGS (1)
  1. AO-GO AMPOULES (APO-GO) (APOMORPHINE HYDROCHLORIDE) 9APOMORPHINE HYDRO [Suspect]
     Indication: DRUG USE FOR UNKNOWN INDICATION

REACTIONS (1)
  - EMBOLISM [None]
